FAERS Safety Report 7346411-6 (Version None)
Quarter: 2011Q1

REPORT INFORMATION
  Report Type: 
  Country: None (occurrence: None)
  Receive Date: 20110311
  Receipt Date: 20110303
  Transmission Date: 20110831
  Serious: Yes (Other)
  Sender: FDA-Public Use
  Company Number: US-RB-023281-11

PATIENT
  Sex: Female

DRUGS (2)
  1. PERCOCET [Suspect]
  2. SUBOXONE [Suspect]
     Indication: PRODUCT USED FOR UNKNOWN INDICATION
     Dosage: DOSAGE UNKOWN AT THIS TIME.- SUBLINGUAL FILM
     Route: 065

REACTIONS (3)
  - CONVULSION [None]
  - HEADACHE [None]
  - DEPRESSION [None]
